FAERS Safety Report 5186422-2 (Version None)
Quarter: 2006Q4

REPORT INFORMATION
  Report Type: 
  Country: None (occurrence: None)
  Receive Date: 20061220
  Receipt Date: 20060810
  Transmission Date: 20070319
  Serious: Yes (Hospitalization)
  Sender: FDA-Public Use
  Company Number: US-ELI_LILLY_AND_COMPANY-US200608002505

PATIENT
  Age: 68 Year
  Sex: Female

DRUGS (9)
  1. ASPIRIN [Concomitant]
     Dosage: 81 MG, UNK
  2. CYMBALTA [Suspect]
     Dosage: 30 MG, DAILY (1/D)
  3. CIALIS [Concomitant]
     Indication: SCLERODERMA
     Dosage: 10 MG, OTHER
  4. TRAZODIL [Concomitant]
     Dosage: 100 MG, EACH EVENING
  5. PREDNISONE TAB [Concomitant]
     Dosage: 30 MG, DAILY (1/D)
  6. METHOTREXATE [Concomitant]
     Dosage: 2.5 MG, 3 TABLETS WEEKLY ON SATURDAY
  7. NIFEDIPINE HCL [Concomitant]
     Dosage: 30 MG, DAILY (1/D)
  8. FOLIC ACID [Concomitant]
     Dosage: 20 MG, DAILY (1/D)
  9. ANGIOMAX [Concomitant]

REACTIONS (6)
  - ATRIAL FIBRILLATION [None]
  - CORONARY ARTERY DISEASE [None]
  - DYSPNOEA [None]
  - PERICARDIAL EFFUSION [None]
  - PERICARDITIS CONSTRICTIVE [None]
  - PULMONARY HYPERTENSION [None]
